FAERS Safety Report 25997138 (Version 1)
Quarter: 2025Q4

REPORT INFORMATION
  Report Type: Spontaneous
  Country: US (occurrence: US)
  Receive Date: 20251104
  Receipt Date: 20251104
  Transmission Date: 20260118
  Serious: Yes (Other)
  Sender: ABBVIE
  Company Number: US-ABBVIE-6527528

PATIENT
  Age: 66 Year
  Sex: Male

DRUGS (2)
  1. RINVOQ [Suspect]
     Active Substance: UPADACITINIB
     Indication: Crohn^s disease
     Route: 048
     Dates: end: 20251030
  2. ELIQUIS [Concomitant]
     Active Substance: APIXABAN
     Indication: Hypocoagulable state
     Route: 065

REACTIONS (7)
  - Vena cava thrombosis [Recovering/Resolving]
  - Arthritis bacterial [Unknown]
  - Embolism venous [Unknown]
  - Thrombosis [Unknown]
  - Arthralgia [Unknown]
  - Tooth abscess [Unknown]
  - Cardiac perforation [Unknown]

NARRATIVE: CASE EVENT DATE: 20250801
